FAERS Safety Report 11527896 (Version 1)
Quarter: 2015Q3

REPORT INFORMATION
  Report Type: Spontaneous
  Country: BR (occurrence: BR)
  Receive Date: 20150920
  Receipt Date: 20150920
  Transmission Date: 20151125
  Serious: Yes (Other)
  Sender: FDA-Public Use
  Company Number: BR-AMGEN-BRASP2015095715

PATIENT
  Age: 37 Year
  Sex: Male
  Weight: 106 kg

DRUGS (1)
  1. ENBREL [Suspect]
     Active Substance: ETANERCEPT
     Indication: PSORIASIS
     Dosage: 50 MG, 1X/WEEK
     Route: 058
     Dates: start: 201405

REACTIONS (3)
  - Anxiety [Unknown]
  - Weight increased [Unknown]
  - Pulmonary fibrosis [Unknown]
